FAERS Safety Report 8775962 (Version 1)
Quarter: 2012Q4

REPORT INFORMATION
  Report Type: 
  Country: US (occurrence: US)
  Receive Date: 20120906
  Receipt Date: 20120906
  Transmission Date: 20130627
  Serious: Yes (Hospitalization)
  Sender: FDA-Public Use
  Company Number: US-PFIZER INC-2012217382

PATIENT
  Age: 43 Year
  Sex: Female

DRUGS (2)
  1. VENLAFAXINE HYDROCHLORIDE [Suspect]
     Dosage: UNK
  2. ZOLPIDEM TARTRATE [Suspect]
     Dosage: UNK

REACTIONS (3)
  - Intentional overdose [Unknown]
  - Hypotension [Recovered/Resolved]
  - Mental status changes [Unknown]
